FAERS Safety Report 19656552 (Version 1)
Quarter: 2021Q3

REPORT INFORMATION
  Report Type: Spontaneous
  Country: US (occurrence: US)
  Receive Date: 20210804
  Receipt Date: 20210804
  Transmission Date: 20211014
  Serious: Yes (Hospitalization, Other)
  Sender: FDA-Public Use
  Company Number: None

PATIENT
  Age: 63 Year
  Sex: Male
  Weight: 87.75 kg

DRUGS (7)
  1. CIPROFLOXACIN USP [Suspect]
     Active Substance: CIPROFLOXACIN
     Indication: URINARY TRACT INFECTION
     Dates: start: 20210211, end: 20210622
  2. KEPPRA [Concomitant]
     Active Substance: LEVETIRACETAM
  3. MODOFINAL [Concomitant]
  4. LAMICTAL [Concomitant]
     Active Substance: LAMOTRIGINE
  5. TYLENOL [Concomitant]
     Active Substance: ACETAMINOPHEN
  6. MACROBID [Suspect]
     Active Substance: NITROFURANTOIN\NITROFURANTOIN MONOHYDRATE
  7. MULTIVITAMIN [Concomitant]
     Active Substance: VITAMINS

REACTIONS (5)
  - Pain [None]
  - Tendon discomfort [None]
  - Gait inability [None]
  - Cerebrovascular accident [None]
  - Tendon disorder [None]

NARRATIVE: CASE EVENT DATE: 20210602
